FAERS Safety Report 15748165 (Version 3)
Quarter: 2018Q4

REPORT INFORMATION
  Report Type: Report from Study
  Country: US (occurrence: US)
  Receive Date: 20181221
  Receipt Date: 20181228
  Transmission Date: 20190205
  Serious: Yes (Hospitalization)
  Sender: FDA-Public Use
  Company Number: US-ROCHE-2230383

PATIENT
  Age: 66 Year
  Sex: Male

DRUGS (7)
  1. OCREVUS [Suspect]
     Active Substance: OCRELIZUMAB
     Indication: PRIMARY PROGRESSIVE MULTIPLE SCLEROSIS
     Dosage: ON 29/AUG/2017, HE RECEIVED SUBSEQUENT DOSE OF OCRELIZUMAB 300MG.
     Route: 042
     Dates: start: 20170814
  2. PREDNISONE. [Concomitant]
     Active Substance: PREDNISONE
  3. SPIRIVA RESPIMAT [Concomitant]
     Active Substance: TIOTROPIUM BROMIDE
     Indication: CHRONIC OBSTRUCTIVE PULMONARY DISEASE
  4. ALBUTEROL. [Concomitant]
     Active Substance: ALBUTEROL
     Indication: CHRONIC OBSTRUCTIVE PULMONARY DISEASE
     Dosage: NEBULIZER
     Route: 065
  5. SYMBICORT [Concomitant]
     Active Substance: BUDESONIDE\FORMOTEROL FUMARATE DIHYDRATE
     Indication: CHRONIC OBSTRUCTIVE PULMONARY DISEASE
  6. BENZONATATE. [Concomitant]
     Active Substance: BENZONATATE
     Route: 065
  7. OCREVUS [Suspect]
     Active Substance: OCRELIZUMAB
     Route: 042
     Dates: start: 20180302

REACTIONS (5)
  - Dyspnoea [Not Recovered/Not Resolved]
  - Respiratory failure [Unknown]
  - Chronic obstructive pulmonary disease [Not Recovered/Not Resolved]
  - Respiratory distress [Unknown]
  - Pneumonia bacterial [Not Recovered/Not Resolved]

NARRATIVE: CASE EVENT DATE: 2018
